FAERS Safety Report 8795922 (Version 1)
Quarter: 2012Q4

REPORT INFORMATION
  Report Type: Report from Study
  Country: JP (occurrence: JP)
  Receive Date: 20120920
  Receipt Date: 20120920
  Transmission Date: 20130627
  Serious: Yes (Death)
  Sender: FDA-Public Use
  Company Number: JP-EISAI INC-E7389-02260-CLI-JP

PATIENT
  Age: 58 Year
  Sex: Female
  Weight: 68 kg

DRUGS (8)
  1. HALAVEN [Suspect]
     Indication: BREAST DUCTAL CANCER INVASIVE
     Route: 041
     Dates: start: 20110922, end: 20110922
  2. HALAVEN [Suspect]
     Indication: METASTASES TO LIVER
  3. ALBUMIN [Concomitant]
     Route: 041
  4. LASIX [Concomitant]
     Route: 041
  5. LASIX [Concomitant]
     Route: 048
  6. SOLDACTONE [Concomitant]
     Route: 041
  7. AROMASIN [Concomitant]
     Indication: PROPHYLAXIS
     Route: 048
  8. ALDACTONE A [Concomitant]
     Route: 048

REACTIONS (4)
  - Hepatorenal syndrome [Fatal]
  - Hepatic function abnormal [Not Recovered/Not Resolved]
  - Invasive ductal breast carcinoma [None]
  - Malignant neoplasm progression [None]
